FAERS Safety Report 16130075 (Version 1)
Quarter: 2019Q1

REPORT INFORMATION
  Report Type: Spontaneous
  Country: FR (occurrence: FR)
  Receive Date: 20190328
  Receipt Date: 20190328
  Transmission Date: 20190418
  Serious: Yes (Other)
  Sender: FDA-Public Use
  Company Number: FR-PFIZER INC-2019134250

PATIENT
  Age: 86 Year
  Sex: Male

DRUGS (12)
  1. SOLUPRED [PREDNISOLONE] [Suspect]
     Active Substance: PREDNISOLONE
     Dosage: 20 MG, 1X/DAY
     Dates: start: 20181214, end: 20181217
  2. PREDNISOLONE TEVA [Suspect]
     Active Substance: PREDNISOLONE
     Indication: LYMPHANGIOSIS CARCINOMATOSA
     Dosage: 100 MG, 1X/DAY
     Route: 048
     Dates: start: 20181220
  3. ATORVASTATINE TEVA SANTE [Suspect]
     Active Substance: ATORVASTATIN
     Indication: HYPERCHOLESTEROLAEMIA
     Dosage: 10 MG, ONCE DAILY
     Route: 048
     Dates: start: 2018
  4. PREDNISOLONE MYLAN [Suspect]
     Active Substance: PREDNISOLONE
     Indication: LYMPHANGIOSIS CARCINOMATOSA
     Dosage: 120 MG, UNK
     Route: 042
     Dates: start: 20181218, end: 20181218
  5. RAMIPRIL. [Suspect]
     Active Substance: RAMIPRIL
     Indication: HYPERTENSION
     Dosage: 5 MG, ONCE DAILY
     Route: 048
     Dates: start: 2018
  6. SOLUPRED [PREDNISOLONE] [Suspect]
     Active Substance: PREDNISOLONE
     Dosage: 20 MG, UNK(FIVE TIME DAILY)
     Route: 048
     Dates: start: 20181219
  7. LANSOPRAZOLE MYLAN [Suspect]
     Active Substance: LANSOPRAZOLE
     Indication: GASTROOESOPHAGEAL REFLUX DISEASE
     Dosage: 15 MG, 1X/DAY
     Route: 048
     Dates: start: 20181015
  8. BISOCE [Suspect]
     Active Substance: BISOPROLOL
     Indication: HYPERTENSION
     Dosage: 1.25 MG, 1X/DAY
     Route: 048
     Dates: start: 20181209
  9. FENTANYL. [Suspect]
     Active Substance: FENTANYL
     Indication: PAIN
     Dosage: 12 UG, 3X/DAY
     Route: 065
     Dates: start: 20181112
  10. ALPRAZOLAM. [Suspect]
     Active Substance: ALPRAZOLAM
     Indication: ANXIETY
     Dosage: 0.25 MG, UNK(1/2 TO 2 IN THE EVENING)
     Route: 048
     Dates: start: 20181216
  11. SOLUPRED [PREDNISOLONE] [Suspect]
     Active Substance: PREDNISOLONE
     Indication: LYMPHANGIOSIS CARCINOMATOSA
     Dosage: 20 MG, 2X/DAY
     Route: 048
     Dates: start: 20181206, end: 20181213
  12. KARDEGIC [Suspect]
     Active Substance: ASPIRIN DL-LYSINE
     Indication: THROMBOSIS PROPHYLAXIS
     Dosage: 75 MG, ONCE DAILY
     Route: 048
     Dates: start: 2018

REACTIONS (1)
  - Cholestasis [Recovering/Resolving]

NARRATIVE: CASE EVENT DATE: 20181128
